FAERS Safety Report 8823558 (Version 1)
Quarter: 2012Q4

REPORT INFORMATION
  Report Type: 
  Country: US (occurrence: US)
  Receive Date: 20121003
  Receipt Date: 20121003
  Transmission Date: 20130627
  Serious: No
  Sender: FDA-Public Use
  Company Number: US-VERTEX PHARMACEUTICAL INC.-2012-020708

PATIENT
  Sex: Female
  Weight: 50 kg

DRUGS (6)
  1. INCIVEK [Suspect]
     Indication: HEPATITIS C
     Dosage: 750 mg, tid
     Route: 048
     Dates: start: 20120717, end: 20120809
  2. PEGASYS [Suspect]
     Indication: HEPATITIS C
     Dosage: 180 UNK, UNK
     Route: 058
     Dates: start: 20120717, end: 20120809
  3. RIBAVIRIN [Suspect]
     Indication: HEPATITIS C
     Dosage: 400 mg, bid
     Route: 048
     Dates: start: 20120717, end: 20120801
  4. RIBAVIRIN [Suspect]
     Dosage: 200 mg, bid
     Route: 048
     Dates: start: 20120801, end: 20120809
  5. BENAZEPRIL [Concomitant]
  6. B C POWDER [Concomitant]

REACTIONS (3)
  - Blood urea increased [Unknown]
  - Blood potassium increased [Unknown]
  - Blood creatinine increased [Unknown]
